FAERS Safety Report 4806118-3 (Version None)
Quarter: 2005Q4

REPORT INFORMATION
  Report Type: 
  Country: None (occurrence: None)
  Receive Date: 20051021
  Receipt Date: 20051007
  Transmission Date: 20060501
  Serious: Yes (Hospitalization)
  Sender: FDA-Public Use
  Company Number: DE-ROCHE-420358

PATIENT
  Age: 57 Year
  Sex: Male

DRUGS (2)
  1. DACLIZUMAB [Suspect]
     Route: 065
  2. TACROLIMUS [Suspect]
     Route: 048
     Dates: start: 20050915

REACTIONS (1)
  - HEPATIC NECROSIS [None]
